FAERS Safety Report 5197172-0 (Version None)
Quarter: 2007Q1

REPORT INFORMATION
  Report Type: 
  Country: None (occurrence: None)
  Receive Date: 20070103
  Receipt Date: 20061229
  Transmission Date: 20070707
  Serious: Yes (Other)
  Sender: FDA-Public Use
  Company Number: DE-GLAXOSMITHKLINE-D0051392A

PATIENT
  Age: 12 Year
  Sex: Female
  Weight: 46.7 kg

DRUGS (5)
  1. ZEFFIX [Suspect]
     Dosage: 100MG PER DAY
     Route: 048
     Dates: start: 20050920
  2. DECORTIN [Concomitant]
     Dosage: 12.5MG TWICE PER DAY
     Route: 048
  3. ADALAT [Concomitant]
     Dosage: 20MG THREE TIMES PER DAY
     Route: 048
  4. FOLIC ACID [Concomitant]
     Dosage: 12.5MG PER DAY
     Route: 048
  5. NEXIUM [Concomitant]
     Dosage: 20MG PER DAY
     Route: 048

REACTIONS (1)
  - HYPOKALAEMIA [None]
